FAERS Safety Report 8137451-8 (Version None)
Quarter: 2012Q1

REPORT INFORMATION
  Report Type: 
  Country: None (occurrence: None)
  Receive Date: 20120213
  Receipt Date: 20120208
  Transmission Date: 20120608
  Serious: Yes (Other)
  Sender: FDA-Public Use
  Company Number: A0965116A

PATIENT
  Sex: Female

DRUGS (3)
  1. CALCIUM CARBONATE [Suspect]
     Indication: PRODUCT USED FOR UNKNOWN INDICATION
     Dosage: UNK / UNK / UNKNOWN
  2. MULTIVITAMIN [Suspect]
     Dosage: UNK / UNK / UNKNOWN
  3. COUGH MEDICATION (FORMULATION UNKNOWN) (COUGH MEDICATION) [Suspect]

REACTIONS (1)
  - DRUG DEPENDENCE [None]
